FAERS Safety Report 9785394 (Version 2)
Quarter: 2014Q1

REPORT INFORMATION
  Report Type: Spontaneous
  Country: JP (occurrence: JP)
  Receive Date: 20131227
  Receipt Date: 20140121
  Transmission Date: 20141002
  Serious: Yes (Hospitalization)
  Sender: FDA-Public Use
  Company Number: JP-ABBVIE-13P-087-1183290-00

PATIENT
  Age: 67 Year
  Sex: Female

DRUGS (3)
  1. KLARICID [Suspect]
     Indication: HELICOBACTER INFECTION
     Route: 048
     Dates: start: 20130824, end: 20130830
  2. SAWACILLIN [Suspect]
     Indication: HELICOBACTER INFECTION
     Route: 048
     Dates: start: 20130824, end: 20130830
  3. TAKEPRON [Concomitant]
     Indication: HELICOBACTER INFECTION
     Route: 048
     Dates: start: 20130824, end: 20130830

REACTIONS (3)
  - Erythema [Unknown]
  - Rash [Recovered/Resolved]
  - Oedema peripheral [Unknown]
